FAERS Safety Report 10045221 (Version 1)
Quarter: 2014Q1

REPORT INFORMATION
  Report Type: Spontaneous
  Country: US (occurrence: US)
  Receive Date: 20140328
  Receipt Date: 20140328
  Transmission Date: 20141002
  Serious: Yes (Other)
  Sender: FDA-Public Use
  Company Number: US-ABBVIE-14P-163-1216033-00

PATIENT
  Sex: Female

DRUGS (2)
  1. PROMETRIUM [Suspect]
     Indication: NEOPLASM MALIGNANT
     Dates: start: 2014
  2. PROMETRIUM [Suspect]
     Indication: PROPHYLAXIS

REACTIONS (4)
  - Breast calcifications [Recovered/Resolved]
  - Breast cyst [Not Recovered/Not Resolved]
  - Breast cyst [Not Recovered/Not Resolved]
  - Product quality issue [Unknown]
